FAERS Safety Report 14341086 (Version 1)
Quarter: 2018Q1

REPORT INFORMATION
  Report Type: Spontaneous
  Country: BR (occurrence: BR)
  Receive Date: 20180102
  Receipt Date: 20180102
  Transmission Date: 20180509
  Serious: Yes (Other)
  Sender: FDA-Public Use
  Company Number: BR-ROCHE-1689592

PATIENT
  Sex: Male

DRUGS (3)
  1. RIVOTRIL [Suspect]
     Active Substance: CLONAZEPAM
     Indication: PRODUCT USED FOR UNKNOWN INDICATION
     Route: 065
  2. OTOSYNALAR [Suspect]
     Active Substance: FLUOCINOLONE ACETONIDE
     Route: 065
     Dates: start: 20151117
  3. OTOSYNALAR [Suspect]
     Active Substance: FLUOCINOLONE ACETONIDE
     Indication: EAR INFECTION
     Route: 065

REACTIONS (10)
  - Irritability [Unknown]
  - Ear discomfort [Unknown]
  - Ear injury [Unknown]
  - Ill-defined disorder [Unknown]
  - Insomnia [Unknown]
  - Cholesteatoma [Not Recovered/Not Resolved]
  - Ear disorder [Unknown]
  - Product taste abnormal [Unknown]
  - Drug ineffective [Unknown]
  - Tinnitus [Not Recovered/Not Resolved]
